FAERS Safety Report 9305119 (Version 1)
Quarter: 2013Q1

REPORT INFORMATION
  Report Type: Spontaneous
  Country: US (occurrence: None)
  Receive Date: 20130212
  Receipt Date: 20130212
  Transmission Date: 20140127
  Serious: Yes (Hospitalization, Other)
  Sender: FDA-Public Use
  Company Number: 09-AUR-09674

PATIENT
  Age: 60 Year
  Sex: Female

DRUGS (6)
  1. PAROXETINE (PAROXETINE) [Suspect]
     Indication: DEPRESSION
     Route: 048
  2. FENTANYL (FENTANYL) [Suspect]
     Indication: ANAESTHESIA
     Route: 042
  3. ATRACURIUM (ATRACURIUM) [Concomitant]
  4. ISOFLURANE (ISOFLURANE) [Concomitant]
  5. PROPOFOL (PROPOFOL) [Concomitant]
  6. THYROXINE (LEVOTHYROXINE SODIUM) [Concomitant]

REACTIONS (12)
  - Procedural haemorrhage [None]
  - Hypertonia [None]
  - Hyperreflexia [None]
  - Clonus [None]
  - Agitation [None]
  - Coma scale abnormal [None]
  - Hypertension [None]
  - Platelet count decreased [None]
  - Blood albumin decreased [None]
  - Haemodilution [None]
  - Serotonin syndrome [None]
  - Tumour excision [None]
